FAERS Safety Report 19130982 (Version 2)
Quarter: 2021Q2

REPORT INFORMATION
  Report Type: Report from Study
  Country: BR (occurrence: BR)
  Receive Date: 20210413
  Receipt Date: 20210625
  Transmission Date: 20210717
  Serious: Yes (Hospitalization, Other)
  Sender: FDA-Public Use
  Company Number: BR-BRISTOL-MYERS SQUIBB COMPANY-BMS-2021-034370

PATIENT
  Age: 69 Year
  Sex: Female

DRUGS (6)
  1. ABATACEPT [Suspect]
     Active Substance: ABATACEPT
     Dosage: 750 MILLIGRAM, QMO
     Route: 042
  2. GLIFAGE [Concomitant]
     Active Substance: METFORMIN HYDROCHLORIDE
     Indication: DIABETES MELLITUS
     Route: 065
  3. SUGANORM [Concomitant]
     Indication: DIABETES MELLITUS
     Route: 065
  4. ATENOLOL. [Concomitant]
     Active Substance: ATENOLOL
     Indication: HYPERTENSION
     Dosage: 100 MILLIGRAM, BID
     Route: 065
  5. FORXIGA [Concomitant]
     Active Substance: DAPAGLIFLOZIN
     Indication: DIABETES MELLITUS
     Route: 065
  6. ABATACEPT [Suspect]
     Active Substance: ABATACEPT
     Indication: RHEUMATOID ARTHRITIS
     Dosage: EVERY 15 DAYS
     Route: 042

REACTIONS (7)
  - Cerebrovascular accident [Unknown]
  - Intentional product use issue [Unknown]
  - Peripheral swelling [Unknown]
  - Blood pressure decreased [Unknown]
  - Illness [Unknown]
  - Dizziness [Unknown]
  - Immunodeficiency [Unknown]
